FAERS Safety Report 15900215 (Version 2)
Quarter: 2019Q4

REPORT INFORMATION
  Report Type: Report from Study
  Country: US (occurrence: US)
  Receive Date: 20190201
  Receipt Date: 20191112
  Transmission Date: 20200122
  Serious: No
  Sender: FDA-Public Use
  Company Number: US-AMGEN-USASP2019013696

PATIENT
  Sex: Female

DRUGS (1)
  1. PROLIA [Suspect]
     Active Substance: DENOSUMAB
     Indication: OSTEOPOROSIS POSTMENOPAUSAL
     Dosage: UNK , Q2WK
     Route: 065

REACTIONS (3)
  - Dermatitis [Unknown]
  - Psoriasis [Unknown]
  - Device breakage [Unknown]

NARRATIVE: CASE EVENT DATE: 2016
